FAERS Safety Report 6084083-1 (Version None)
Quarter: 2009Q1

REPORT INFORMATION
  Report Type: 
  Country: None (occurrence: None)
  Receive Date: 20090204
  Receipt Date: 20080828
  Transmission Date: 20090719
  Serious: Yes (Other)
  Sender: FDA-Public Use
  Company Number: 278926

PATIENT
  Age: 35 Year
  Sex: Female

DRUGS (5)
  1. NOVOLOG [Suspect]
     Indication: TYPE 1 DIABETES MELLITUS
     Dosage: 7 LU, PM, SUBCUTANEOUS
     Route: 058
  2. NOVOLOG [Suspect]
     Indication: TYPE 1 DIABETES MELLITUS
     Dosage: SUBCUTANEOUS
     Route: 058
  3. LEVEMIR [Concomitant]
  4. CARBAMAZEPINE [Concomitant]
  5. REQUIP [Concomitant]

REACTIONS (2)
  - BLOOD GLUCOSE INCREASED [None]
  - HYPOGLYCAEMIC UNCONSCIOUSNESS [None]
